FAERS Safety Report 8176270-3 (Version None)
Quarter: 2012Q1

REPORT INFORMATION
  Report Type: 
  Country: None (occurrence: None)
  Receive Date: 20120301
  Receipt Date: 20120227
  Transmission Date: 20120608
  Serious: Yes (Hospitalization)
  Sender: FDA-Public Use
  Company Number: US-JNJFOC-20120106717

PATIENT
  Age: 79 Year
  Sex: Female

DRUGS (5)
  1. MINOXIDIL [Suspect]
     Indication: HAIR GROWTH ABNORMAL
     Dosage: 1 CAPFUL
     Route: 061
     Dates: end: 20120101
  2. MURO 128 [Concomitant]
     Indication: CORNEAL DYSTROPHY
     Route: 065
  3. HYDROXYZINE [Concomitant]
     Indication: DERMATITIS ALLERGIC
     Route: 065
  4. ACTONEL [Concomitant]
     Indication: OSTEOPOROSIS
     Route: 065
  5. MINOXIDIL [Suspect]
     Route: 061

REACTIONS (4)
  - ASTHENIA [None]
  - WRONG DRUG ADMINISTERED [None]
  - FEELING ABNORMAL [None]
  - HEADACHE [None]
